FAERS Safety Report 8284820 (Version 3)
Quarter: 2013Q2

REPORT INFORMATION
  Report Type: Report from Study
  Country: US (occurrence: US)
  Receive Date: 20111212
  Receipt Date: 20130425
  Transmission Date: 20140414
  Serious: Yes (Hospitalization)
  Sender: FDA-Public Use
  Company Number: US-ACTELION-A-NJ2010-37088

PATIENT
  Age: 79 Year
  Sex: Female

DRUGS (2)
  1. TRACLEER [Suspect]
     Indication: PULMONARY ARTERIAL HYPERTENSION
     Dosage: 125 MG, BID
     Route: 048
     Dates: start: 201003
  2. TRACLEER [Suspect]
     Dosage: 62.5 MG, BID
     Route: 048
     Dates: start: 201002

REACTIONS (11)
  - Renal failure [Unknown]
  - Renal disorder [Unknown]
  - Dialysis [Unknown]
  - Pulmonary oedema [Unknown]
  - Dehydration [Unknown]
  - Chest pain [Unknown]
  - Dyspnoea [Unknown]
  - Fluid retention [Unknown]
  - Cardiac failure congestive [Recovered/Resolved]
  - Arthritis [Unknown]
  - Pain [Unknown]
